FAERS Safety Report 6965128-0 (Version None)
Quarter: 2010Q3

REPORT INFORMATION
  Report Type: 
  Country: None (occurrence: None)
  Receive Date: 20100903
  Receipt Date: 20100827
  Transmission Date: 20110219
  Serious: Yes (Death, Hospitalization)
  Sender: FDA-Public Use
  Company Number: DE-PFIZER INC-2010074469

PATIENT
  Age: 84 Year
  Sex: Female

DRUGS (12)
  1. NORVASC [Suspect]
     Indication: HYPERTENSION
     Dosage: 5 MG, 2X/DAY
     Route: 048
     Dates: start: 20020101, end: 20100513
  2. ENALAPRIL MALEATE [Suspect]
     Indication: HYPERTENSION
     Dosage: 20 MG, 2X/DAY
     Route: 048
     Dates: start: 20030101, end: 20100513
  3. TORASEMIDE [Suspect]
     Indication: HYPERTENSION
     Dosage: 20 MG, 2X/DAY
     Route: 048
     Dates: start: 20080101, end: 20100513
  4. XIPAMIDE [Suspect]
     Indication: HYPERTENSION
     Dosage: 20 MG, 1X/DAY
     Route: 048
     Dates: start: 20100201, end: 20100513
  5. METOPROLOL - SLOW RELEASE [Suspect]
     Indication: HYPERTENSION
     Dosage: 150 MG/DAY (100 MG IN THE MORNING; 50 MG IN THE EVENING)
     Route: 048
     Dates: start: 20000101
  6. ASPIRIN [Concomitant]
     Indication: CORONARY ARTERY DISEASE
     Dosage: 100 MG, 1X/DAY
     Route: 048
     Dates: start: 20030101
  7. FENTANYL [Concomitant]
     Indication: OSTEOARTHRITIS
     Dosage: 5.25 MG, EVERY 3RD DAY
     Route: 062
  8. PENTAERYTHRITOL TETRANITRATE [Concomitant]
     Indication: CORONARY ARTERY DISEASE
     Dosage: 80 MG, 3X/DAY
     Route: 048
     Dates: start: 20030101
  9. HAEMOPROTECT [Concomitant]
     Indication: IRON DEFICIENCY
     Dosage: 100 MG, 2X/DAY
     Route: 048
  10. METAMIZOLE SODIUM [Concomitant]
     Indication: OSTEOARTHRITIS
     Dosage: 30 GTT, 3X/DAY
     Route: 048
  11. PLAVIX [Concomitant]
     Indication: CORONARY ARTERY DISEASE
     Dosage: 75 MG, 1X/DAY
     Route: 048
     Dates: start: 20030101, end: 20100513
  12. FALITHROM [Concomitant]
     Indication: PERIPHERAL ARTERIAL OCCLUSIVE DISEASE
     Dosage: 1.5 MG, 1X/DAY (DOSE ACCORDING TO QUICK'S VALUE)
     Route: 048
     Dates: end: 20100514

REACTIONS (1)
  - RENAL FAILURE ACUTE [None]
